FAERS Safety Report 10279464 (Version 1)
Quarter: 2014Q3

REPORT INFORMATION
  Report Type: Spontaneous
  Country: US (occurrence: None)
  Receive Date: 20140702
  Receipt Date: 20140702
  Transmission Date: 20150326
  Serious: Yes (Death)
  Sender: FDA-Public Use
  Company Number: None

PATIENT
  Age: 72 Year
  Sex: Male
  Weight: 93.3 kg

DRUGS (13)
  1. ASPIRIN. [Concomitant]
     Active Substance: ASPIRIN
  2. LOPRESSOR [Concomitant]
     Active Substance: METOPROLOL TARTRATE
  3. OMEGA-3 ACIDS [Concomitant]
     Active Substance: OMEGA-3 FATTY ACIDS
  4. VITAMIN D2 [Concomitant]
     Active Substance: ERGOCALCIFEROL
  5. MAGNESIUM OXIDE. [Concomitant]
     Active Substance: MAGNESIUM OXIDE
  6. LASIX [Concomitant]
     Active Substance: FUROSEMIDE
  7. PRILOSEC [Concomitant]
     Active Substance: OMEPRAZOLE MAGNESIUM
  8. ACIDOPHILUS [Concomitant]
     Active Substance: LACTOBACILLUS ACIDOPHILUS
  9. XARELTO [Suspect]
     Active Substance: RIVAROXABAN
     Indication: ATRIAL FIBRILLATION
     Route: 048
  10. MULTIVITAMIN [Concomitant]
     Active Substance: VITAMINS
  11. LIPITOR [Concomitant]
     Active Substance: ATORVASTATIN CALCIUM
  12. VITAMIN B12 [Concomitant]
     Active Substance: CYANOCOBALAMIN
  13. XIFAXAN [Concomitant]
     Active Substance: RIFAXIMIN

REACTIONS (3)
  - Basal ganglia haemorrhage [None]
  - Brain stem syndrome [None]
  - Cerebral haemorrhage [None]

NARRATIVE: CASE EVENT DATE: 20140618
